FAERS Safety Report 19088608 (Version 2)
Quarter: 2021Q2

REPORT INFORMATION
  Report Type: Spontaneous
  Country: US (occurrence: US)
  Receive Date: 20210402
  Receipt Date: 20210505
  Transmission Date: 20210717
  Serious: Yes (Death, Hospitalization)
  Sender: FDA-Public Use
  Company Number: 2020SGN04374

PATIENT
  Sex: Female

DRUGS (2)
  1. DECADRON [Concomitant]
     Active Substance: DEXAMETHASONE
  2. TUKYSA [Suspect]
     Active Substance: TUCATINIB
     Indication: BREAST CANCER FEMALE
     Dosage: UNK, BID

REACTIONS (9)
  - Vaginal haemorrhage [Unknown]
  - Fatigue [Unknown]
  - Death [Fatal]
  - Asthenia [Unknown]
  - Gastric disorder [Unknown]
  - Eating disorder [Unknown]
  - Tremor [Unknown]
  - Vomiting [Unknown]
  - Blood urine [Unknown]
